FAERS Safety Report 12966807 (Version 1)
Quarter: 2016Q4

REPORT INFORMATION
  Report Type: Spontaneous
  Country: US (occurrence: US)
  Receive Date: 20161123
  Receipt Date: 20161123
  Transmission Date: 20170207
  Serious: Yes (Other)
  Sender: FDA-Public Use
  Company Number: US-AUROBINDO-AUR-APU-2016-10146

PATIENT
  Sex: Female
  Weight: 69.4 kg

DRUGS (1)
  1. ISOSULFAN BLUE 1% [Suspect]
     Active Substance: ISOSULFAN BLUE
     Indication: PRODUCT USED FOR UNKNOWN INDICATION
     Dosage: UNK
     Route: 065
     Dates: start: 20160802, end: 20160802

REACTIONS (5)
  - Anaphylactic reaction [Recovered/Resolved]
  - Piloerection [Recovered/Resolved]
  - Hypotension [Recovered/Resolved]
  - Oedema [Recovered/Resolved]
  - Rash [Recovered/Resolved]
